FAERS Safety Report 24381668 (Version 3)
Quarter: 2025Q1

REPORT INFORMATION
  Report Type: Report from Study
  Country: US (occurrence: US)
  Receive Date: 20241001
  Receipt Date: 20250122
  Transmission Date: 20250409
  Serious: Yes (Death, Hospitalization)
  Sender: UCB
  Company Number: US-UCBSA-2024048774

PATIENT
  Age: 58 Year
  Sex: Male

DRUGS (2)
  1. FINTEPLA [Suspect]
     Active Substance: FENFLURAMINE
     Indication: Lennox-Gastaut syndrome
     Dosage: 0.5 MILLILITER, 2X/DAY (BID)
     Dates: start: 20240801, end: 2024
  2. FINTEPLA [Suspect]
     Active Substance: FENFLURAMINE
     Dosage: 0.5 MILLILITER, 2X/DAY (BID)
     Dates: end: 20241020

REACTIONS (3)
  - Death [Fatal]
  - Dehydration [Recovered/Resolved]
  - Adult failure to thrive [Recovered/Resolved]

NARRATIVE: CASE EVENT DATE: 20240911
